FAERS Safety Report 8432641 (Version 2)
Quarter: 2014Q1

REPORT INFORMATION
  Report Type: Spontaneous
  Country: US (occurrence: US)
  Receive Date: 20120229
  Receipt Date: 20140324
  Transmission Date: 20141002
  Serious: No
  Sender: FDA-Public Use
  Company Number: US-PFIZER INC-2012051184

PATIENT
  Age: 77 Year
  Sex: Female

DRUGS (13)
  1. CARDURA [Suspect]
     Dosage: UNK
  2. AMOXICILLIN [Suspect]
     Dosage: UNK
  3. ZOLOFT [Suspect]
     Dosage: UNK
  4. SULFASALAZINE [Suspect]
     Dosage: UNK
  5. CIPROFLOXACIN [Suspect]
     Dosage: UNK
  6. IBUPROFEN [Suspect]
     Dosage: UNK
  7. NORVASC [Suspect]
     Dosage: UNK
  8. LEXAPRO [Suspect]
     Dosage: UNK
  9. SYMBYAX [Suspect]
     Dosage: UNK
  10. LOTENSIN [Suspect]
     Dosage: UNK
  11. LOTENSIN HCT [Suspect]
     Dosage: UNK
  12. NAPROSYN [Suspect]
     Dosage: UNK
  13. PERCOCET [Suspect]
     Dosage: UNK

REACTIONS (1)
  - Drug hypersensitivity [Unknown]
